FAERS Safety Report 6328584-7 (Version None)
Quarter: 2009Q3

REPORT INFORMATION
  Report Type: 
  Country: None (occurrence: None)
  Receive Date: 20090826
  Receipt Date: 20090814
  Transmission Date: 20100115
  Serious: Yes (Hospitalization, Other)
  Sender: FDA-Public Use
  Company Number: US-JNJFOC-20090805077

PATIENT
  Age: 53 Year
  Sex: Male

DRUGS (2)
  1. INFLIXIMAB [Suspect]
     Indication: CROHN'S DISEASE
     Dosage: ON INFLIX FOR ^THE PAST 3 YEARS^
     Route: 042
  2. AZATHIOPRINE [Concomitant]

REACTIONS (1)
  - DISSEMINATED CRYPTOCOCCOSIS [None]
